APPROVED DRUG PRODUCT: TOBREX
Active Ingredient: TOBRAMYCIN
Strength: 0.3%
Dosage Form/Route: SOLUTION/DROPS;OPHTHALMIC
Application: A062535 | Product #001 | TE Code: AT
Applicant: SANDOZ INC
Approved: Dec 13, 1984 | RLD: No | RS: No | Type: RX